FAERS Safety Report 5728478-1 (Version None)
Quarter: 2008Q2

REPORT INFORMATION
  Report Type: 
  Country: None (occurrence: None)
  Receive Date: 20080506
  Receipt Date: 20080425
  Transmission Date: 20081010
  Serious: Yes (Hospitalization, Other)
  Sender: FDA-Public Use
  Company Number: US-ROCHE-443542

PATIENT
  Sex: Female
  Weight: 59 kg

DRUGS (4)
  1. ACCUTANE [Suspect]
     Dosage: 20 MG EVERY MORNING AND 40 MG EVERY EVENING.
     Route: 048
     Dates: start: 19961027, end: 19970327
  2. ACCUTANE [Suspect]
     Route: 048
     Dates: start: 19970328, end: 19970807
  3. OVCON-35 [Concomitant]
     Indication: ORAL CONTRACEPTION
     Route: 048
  4. OVCON-35 [Concomitant]
     Route: 048

REACTIONS (31)
  - ACNE [None]
  - ANXIETY [None]
  - ARTHRITIS [None]
  - ATTENTION DEFICIT/HYPERACTIVITY DISORDER [None]
  - BACK PAIN [None]
  - COLITIS ULCERATIVE [None]
  - DEPRESSION [None]
  - DRY EYE [None]
  - DRY SKIN [None]
  - EAR INFECTION [None]
  - FATIGUE [None]
  - FRACTURE [None]
  - HEADACHE [None]
  - INFLAMMATORY BOWEL DISEASE [None]
  - IRRITABLE BOWEL SYNDROME [None]
  - KIDNEY INFECTION [None]
  - LIP DRY [None]
  - LUMBAR VERTEBRAL FRACTURE [None]
  - MELANOCYTIC NAEVUS [None]
  - MENSTRUATION IRREGULAR [None]
  - MIGRAINE [None]
  - NASAL DRYNESS [None]
  - NEPHROLITHIASIS [None]
  - NIGHT BLINDNESS [None]
  - PHARYNGITIS [None]
  - PYREXIA [None]
  - STOMACH DISCOMFORT [None]
  - SUICIDAL IDEATION [None]
  - ULCERATIVE KERATITIS [None]
  - URINARY TRACT INFECTION [None]
  - VITREOUS FLOATERS [None]
